FAERS Safety Report 8296559-7 (Version None)
Quarter: 2012Q2

REPORT INFORMATION
  Report Type: 
  Country: None (occurrence: None)
  Receive Date: 20120418
  Receipt Date: 20120404
  Transmission Date: 20120825
  Serious: Yes (Other)
  Sender: FDA-Public Use
  Company Number: US-ROCHE-1058501

PATIENT
  Sex: Female

DRUGS (3)
  1. NAPROXEN SODIUM [Suspect]
     Indication: ARTHRITIS
     Dosage: FILM COATED TABLET
     Route: 048
  2. NAPROXEN SODIUM [Suspect]
     Dosage: FORM: SMOOTH GEL
     Route: 048
  3. NAPROXEN SODIUM [Suspect]
     Dosage: FORM: GEL CAPS
     Route: 048

REACTIONS (3)
  - NO ADVERSE EVENT [None]
  - CHOKING [None]
  - FOREIGN BODY [None]
